FAERS Safety Report 5375422-5 (Version None)
Quarter: 2007Q2

REPORT INFORMATION
  Report Type: 
  Country: None (occurrence: None)
  Receive Date: 20070629
  Receipt Date: 20070619
  Transmission Date: 20071010
  Serious: Yes (Hospitalization, Other)
  Sender: FDA-Public Use
  Company Number: AU-PFIZER INC-2007040459

PATIENT
  Sex: Male
  Weight: 108 kg

DRUGS (2)
  1. ZELDOX (CAPSULES) [Suspect]
     Indication: SCHIZOPHRENIA
     Route: 048
     Dates: start: 20070414, end: 20070419
  2. CLOZAPINE [Suspect]
     Indication: SCHIZOPHRENIA
     Route: 048

REACTIONS (5)
  - ABNORMAL BEHAVIOUR [None]
  - GRAND MAL CONVULSION [None]
  - INSOMNIA [None]
  - RESTLESSNESS [None]
  - SCHIZOPHRENIA [None]
